FAERS Safety Report 7349137-8 (Version None)
Quarter: 2011Q1

REPORT INFORMATION
  Report Type: 
  Country: None (occurrence: None)
  Receive Date: 20110314
  Receipt Date: 20110302
  Transmission Date: 20110831
  Serious: Yes (Hospitalization, Other)
  Sender: FDA-Public Use
  Company Number: TR-TYCO HEALTHCARE/MALLINCKRODT-T201100536

PATIENT
  Age: 52 Year
  Sex: Male

DRUGS (2)
  1. HEPARIN [Concomitant]
     Dosage: 2500 UNITS
     Route: 042
  2. OPTIRAY 350 [Suspect]
     Indication: ARTERIOGRAM CORONARY
     Dosage: 150 ML, SINGLE
     Route: 042

REACTIONS (4)
  - AMNESIA [None]
  - CONFUSIONAL STATE [None]
  - DIZZINESS [None]
  - BLINDNESS TRANSIENT [None]
